FAERS Safety Report 4300382-5 (Version None)
Quarter: 2004Q1

REPORT INFORMATION
  Report Type: 
  Country: None (occurrence: None)
  Receive Date: 20040220
  Receipt Date: 20040209
  Transmission Date: 20041129
  Serious: Yes (Other)
  Sender: FDA-Public Use
  Company Number: SE-GLAXOSMITHKLINE-B0322614A

PATIENT
  Sex: Male

DRUGS (1)
  1. AUGMENTIN '250' [Suspect]
     Indication: UPPER RESPIRATORY TRACT INFECTION
     Dosage: 1TAB THREE TIMES PER DAY
     Dates: start: 20000518

REACTIONS (6)
  - ABDOMINAL PAIN [None]
  - ANOREXIA [None]
  - FATIGUE [None]
  - HEPATIC ENZYME INCREASED [None]
  - NAUSEA [None]
  - VOMITING [None]
